FAERS Safety Report 4324272-7 (Version None)
Quarter: 2004Q1

REPORT INFORMATION
  Report Type: 
  Country: None (occurrence: None)
  Receive Date: 20040326
  Receipt Date: 20040119
  Transmission Date: 20041129
  Serious: No
  Sender: FDA-Public Use
  Company Number: US-GLAXOSMITHKLINE-A0493946A

PATIENT
  Sex: Female

DRUGS (10)
  1. ADVAIR DISKUS 100/50 [Suspect]
     Indication: ASTHMA
     Dosage: 1PUFF TWICE PER DAY
     Route: 055
     Dates: start: 20030901
  2. ZOLOFT [Concomitant]
  3. OGEN [Concomitant]
  4. MECLIZINE [Concomitant]
  5. MACRODANTIN [Concomitant]
  6. ZESTRIL [Concomitant]
  7. XANAX [Concomitant]
  8. TAGAMET [Concomitant]
  9. THEOPHYLLINE [Concomitant]
  10. PRIMIDONE [Concomitant]

REACTIONS (3)
  - ABDOMINAL DISCOMFORT [None]
  - COUGH [None]
  - SINUSITIS [None]
